FAERS Safety Report 8972925 (Version 1)
Quarter: 2012Q4

REPORT INFORMATION
  Report Type: 
  Country: US (occurrence: US)
  Receive Date: 20121218
  Receipt Date: 20121218
  Transmission Date: 20130627
  Serious: Yes (Hospitalization)
  Sender: FDA-Public Use
  Company Number: US-BRISTOL-MYERS SQUIBB COMPANY-16965956

PATIENT
  Age: 7 None
  Sex: Female

DRUGS (4)
  1. ABILIFY [Suspect]
  2. ARICEPT [Suspect]
  3. NAMENDA [Suspect]
  4. DEPAKOTE [Suspect]
     Dosage: Dose value:500 mg in the morning and 750 mg at night

REACTIONS (1)
  - Body temperature decreased [Unknown]
